FAERS Safety Report 8451933-0 (Version None)
Quarter: 2012Q2

REPORT INFORMATION
  Report Type: 
  Country: None (occurrence: None)
  Receive Date: 20120620
  Receipt Date: 20120326
  Transmission Date: 20120825
  Serious: No
  Sender: FDA-Public Use
  Company Number: US-VERTEX PHARMACEUTICALS INC.-AE-2012-004308

PATIENT
  Sex: Male
  Weight: 84.898 kg

DRUGS (4)
  1. INCIVEK [Suspect]
     Indication: HEPATITIS C
     Route: 048
  2. NADOLOL [Concomitant]
  3. PEGASYS [Concomitant]
     Indication: HEPATITIS C
     Route: 058
  4. RIBAVIRIN [Concomitant]
     Indication: HEPATITIS C

REACTIONS (2)
  - CONSTIPATION [None]
  - DIARRHOEA [None]
